FAERS Safety Report 20469204 (Version 1)
Quarter: 2022Q1

REPORT INFORMATION
  Report Type: Report from Study
  Country: US (occurrence: US)
  Receive Date: 20220214
  Receipt Date: 20220214
  Transmission Date: 20220423
  Serious: Yes (Other)
  Sender: FDA-Public Use
  Company Number: US-JAZZ-2022-US-001160

PATIENT
  Sex: Female

DRUGS (6)
  1. XYREM [Suspect]
     Active Substance: SODIUM OXYBATE
     Indication: Narcolepsy
     Dosage: UNKNWON DOSE
     Route: 048
  2. XYREM [Suspect]
     Active Substance: SODIUM OXYBATE
     Indication: Cataplexy
  3. GABAPENTIN [Concomitant]
     Active Substance: GABAPENTIN
     Dosage: 0000
     Dates: start: 20140429
  4. DIFLUCAN [Concomitant]
     Active Substance: FLUCONAZOLE
     Dosage: 0000
     Dates: start: 20140429
  5. ADDERALL [Concomitant]
     Active Substance: AMPHETAMINE ASPARTATE\AMPHETAMINE SULFATE\DEXTROAMPHETAMINE SACCHARATE\DEXTROAMPHETAMINE SULFATE
     Dosage: 0000
     Dates: start: 20140429
  6. TIZANIDINE HYDROCHLORIDE [Concomitant]
     Active Substance: TIZANIDINE HYDROCHLORIDE
     Dosage: 0000
     Dates: start: 20181101

REACTIONS (5)
  - Surgery [Unknown]
  - Tooth abscess [Not Recovered/Not Resolved]
  - Tooth extraction [Unknown]
  - Colonoscopy [Unknown]
  - Blood pressure increased [Not Recovered/Not Resolved]
